FAERS Safety Report 7790044-4 (Version None)
Quarter: 2011Q3

REPORT INFORMATION
  Report Type: 
  Country: None (occurrence: None)
  Receive Date: 20110930
  Receipt Date: 20101001
  Transmission Date: 20111222
  Serious: No
  Sender: FDA-Public Use
  Company Number: US-ASTRAZENECA-2010SE42552

PATIENT
  Age: 699 Month
  Sex: Female
  Weight: 56.2 kg

DRUGS (1)
  1. ARIMIDEX [Suspect]
     Indication: BREAST CANCER
     Route: 048
     Dates: start: 20100517

REACTIONS (5)
  - OROPHARYNGEAL PAIN [None]
  - DYSPHONIA [None]
  - ARTHRALGIA [None]
  - THROAT IRRITATION [None]
  - COUGH [None]
